FAERS Safety Report 15925551 (Version 3)
Quarter: 2019Q1

REPORT INFORMATION
  Report Type: Spontaneous
  Country: US (occurrence: US)
  Receive Date: 20190206
  Receipt Date: 20190215
  Transmission Date: 20190417
  Serious: Yes (Other)
  Sender: FDA-Public Use
  Company Number: US-PFIZER INC-2019048888

PATIENT
  Age: 67 Year
  Sex: Female
  Weight: 72.56 kg

DRUGS (1)
  1. LYRICA [Suspect]
     Active Substance: PREGABALIN
     Indication: POLYNEUROPATHY
     Dosage: 100 MG, 2X/DAY
     Dates: start: 2010

REACTIONS (7)
  - Gastric disorder [Unknown]
  - Hallucination [Unknown]
  - Cerebral disorder [Unknown]
  - Memory impairment [Unknown]
  - Product use in unapproved indication [Unknown]
  - Fatigue [Unknown]
  - Product dose omission [Unknown]
